FAERS Safety Report 6778748-3 (Version None)
Quarter: 2010Q2

REPORT INFORMATION
  Report Type: 
  Country: None (occurrence: None)
  Receive Date: 20100618
  Receipt Date: 20100603
  Transmission Date: 20101027
  Serious: Yes (Hospitalization, Other)
  Sender: FDA-Public Use
  Company Number: US-BAYER-201015419NA

PATIENT
  Age: 38 Year
  Sex: Female
  Weight: 70 kg

DRUGS (5)
  1. YAZ [Suspect]
     Indication: CONTRACEPTION
     Route: 048
     Dates: start: 20070129, end: 20081210
  2. ALBUTEROL [Concomitant]
     Route: 055
  3. NASONEX [Concomitant]
     Route: 065
     Dates: start: 20010101
  4. CLARITIN [Concomitant]
     Dosage: EARLY 2000'S
     Route: 065
  5. VALTREX [Concomitant]
     Dosage: EARLY 2000'S
     Route: 065

REACTIONS (2)
  - ABDOMINAL PAIN UPPER [None]
  - CHOLESTEROSIS [None]
